FAERS Safety Report 21343114 (Version 6)
Quarter: 2024Q4

REPORT INFORMATION
  Report Type: Spontaneous
  Country: US (occurrence: US)
  Receive Date: 20220916
  Receipt Date: 20241125
  Transmission Date: 20250115
  Serious: No
  Sender: PFIZER
  Company Number: US-PFIZER INC-202201162071

PATIENT
  Age: 64 Year
  Sex: Male
  Weight: 136.08 kg

DRUGS (3)
  1. VYNDAMAX [Suspect]
     Active Substance: TAFAMIDIS
     Indication: Acquired ATTR amyloidosis
     Dosage: 61 MG
     Dates: end: 202204
  2. VYNDAMAX [Suspect]
     Active Substance: TAFAMIDIS
     Indication: Chronic left ventricular failure
     Dosage: 61 MG, 1X/DAY
     Route: 048
     Dates: start: 20231128
  3. CRESTOR [Concomitant]
     Active Substance: ROSUVASTATIN CALCIUM
     Dosage: TAKE 1 TABLET (40 MG) BY MOUTH AT BEDTIME
     Route: 048
     Dates: start: 20240306

REACTIONS (3)
  - Malaise [Unknown]
  - Hypoacusis [Unknown]
  - Musculoskeletal disorder [Unknown]
